FAERS Safety Report 5565812-X (Version None)
Quarter: 2007Q4

REPORT INFORMATION
  Report Type: 
  Country: None (occurrence: None)
  Receive Date: 20071218
  Receipt Date: 20071210
  Transmission Date: 20080405
  Serious: Yes (Disabling)
  Sender: FDA-Public Use
  Company Number: JP-ABBOTT-07P-087-0428094-00

PATIENT
  Age: 38 Year
  Sex: Female

DRUGS (4)
  1. CLARITH TABLETS [Suspect]
     Indication: PNEUMONIA
     Route: 048
     Dates: start: 20070612, end: 20070618
  2. CLARITH TABLETS [Suspect]
     Dates: start: 20070511
  3. THEOPHYLLINE [Concomitant]
     Indication: BRONCHITIS
     Route: 048
     Dates: start: 20070612, end: 20070618
  4. TULOBUTEROL [Concomitant]
     Indication: BRONCHITIS
     Route: 062
     Dates: start: 20070612, end: 20070618

REACTIONS (3)
  - ANOSMIA [None]
  - HYPOGEUSIA [None]
  - PAROSMIA [None]
